FAERS Safety Report 4928711-X (Version None)
Quarter: 2006Q1

REPORT INFORMATION
  Report Type: 
  Country: None (occurrence: None)
  Receive Date: 20060301
  Receipt Date: 20060215
  Transmission Date: 20060701
  Serious: Yes (Death)
  Sender: FDA-Public Use
  Company Number: AU-BOEHRINGER INGELHEIM PHARMACEUTICALS, INC.-2006-DE-00865GD

PATIENT

DRUGS (4)
  1. ASPIRIN [Suspect]
     Indication: THROMBOSIS PROPHYLAXIS
  2. ASPIRIN [Suspect]
     Indication: ATRIAL FIBRILLATION
  3. DIPYRIDAMOLE [Suspect]
     Indication: THROMBOSIS PROPHYLAXIS
  4. DIPYRIDAMOLE [Suspect]
     Indication: ATRIAL FIBRILLATION

REACTIONS (1)
  - MYOCARDIAL INFARCTION [None]
